FAERS Safety Report 10349639 (Version 1)
Quarter: 2014Q3

REPORT INFORMATION
  Report Type: Spontaneous
  Country: US (occurrence: None)
  Receive Date: 20140728
  Receipt Date: 20140728
  Transmission Date: 20150326
  Serious: Yes (Other)
  Sender: FDA-Public Use
  Company Number: None

PATIENT
  Age: 65 Year
  Sex: Female
  Weight: 72.58 kg

DRUGS (2)
  1. ANASTROZOLE. [Suspect]
     Active Substance: ANASTROZOLE
     Indication: OESTROGEN RECEPTOR POSITIVE BREAST CANCER
     Dosage: 1 DAY ONCE DAILY TAKEN BY MOUTH
     Route: 048
     Dates: start: 20130501, end: 20140726
  2. ANASTROZOLE. [Suspect]
     Active Substance: ANASTROZOLE
     Indication: ANTIOESTROGEN THERAPY
     Dosage: 1 DAY ONCE DAILY TAKEN BY MOUTH
     Route: 048
     Dates: start: 20130501, end: 20140726

REACTIONS (7)
  - Pruritus [None]
  - Eye pruritus [None]
  - Depression [None]
  - Alopecia [None]
  - Lacrimation increased [None]
  - Arthralgia [None]
  - Asthenia [None]

NARRATIVE: CASE EVENT DATE: 20140501
